FAERS Safety Report 13721168 (Version 1)
Quarter: 2017Q3

REPORT INFORMATION
  Report Type: Spontaneous
  Country: US (occurrence: US)
  Receive Date: 20170705
  Receipt Date: 20170705
  Transmission Date: 20171127
  Serious: Yes (Life-Threatening, Disabling)
  Sender: FDA-Public Use
  Company Number: None

PATIENT
  Age: 49 Year
  Sex: Female
  Weight: 76.5 kg

DRUGS (1)
  1. XANAX GENERIC [Suspect]
     Active Substance: ALPRAZOLAM
     Indication: SLEEP DISORDER
     Dosage: ?          QUANTITY:1.25 CAPSULE(S);?
     Route: 048
     Dates: start: 20130701, end: 20170310

REACTIONS (13)
  - Abdominal distension [None]
  - Cardiac disorder [None]
  - Palpitations [None]
  - Pain [None]
  - Withdrawal syndrome [None]
  - Migraine [None]
  - Insomnia [None]
  - Mobility decreased [None]
  - Loss of consciousness [None]
  - Tinnitus [None]
  - Mental impairment [None]
  - Constipation [None]
  - Unevaluable event [None]

NARRATIVE: CASE EVENT DATE: 20170317
